FAERS Safety Report 8483433-6 (Version None)
Quarter: 2012Q3

REPORT INFORMATION
  Report Type: 
  Country: None (occurrence: None)
  Receive Date: 20120702
  Receipt Date: 20120626
  Transmission Date: 20120928
  Serious: Yes (Hospitalization)
  Sender: FDA-Public Use
  Company Number: US-PFIZER INC-2012154374

PATIENT
  Age: 52 Year
  Sex: Female

DRUGS (2)
  1. CELEBREX [Suspect]
     Indication: TENDONITIS
     Dosage: 200 MG DAILY
     Route: 048
  2. VOLTAREN [Suspect]
     Indication: TENDONITIS
     Dosage: UNK

REACTIONS (1)
  - GASTROINTESTINAL HAEMORRHAGE [None]
